FAERS Safety Report 6614486-5 (Version None)
Quarter: 2010Q1

REPORT INFORMATION
  Report Type: 
  Country: None (occurrence: None)
  Receive Date: 20100304
  Receipt Date: 20100304
  Transmission Date: 20100710
  Serious: Yes (Hospitalization)
  Sender: FDA-Public Use
  Company Number: None

PATIENT
  Age: 34 Year
  Sex: Female
  Weight: 68.0396 kg

DRUGS (2)
  1. AVELOX [Suspect]
     Indication: BRONCHITIS
     Dosage: 1 TABLET ONCE A DAY PO
     Route: 048
     Dates: start: 20100214, end: 20100221
  2. AVELOX [Suspect]
     Indication: EAR INFECTION
     Dosage: 1 TABLET ONCE A DAY PO
     Route: 048
     Dates: start: 20100214, end: 20100221

REACTIONS (10)
  - APHASIA [None]
  - ASTHENIA [None]
  - CLUMSINESS [None]
  - DIZZINESS [None]
  - FALL [None]
  - FEAR [None]
  - GAIT DISTURBANCE [None]
  - MEMORY IMPAIRMENT [None]
  - PAIN IN EXTREMITY [None]
  - TREMOR [None]
